FAERS Safety Report 8776237 (Version 2)
Quarter: 2013Q1

REPORT INFORMATION
  Report Type: Spontaneous
  Country: US (occurrence: US)
  Receive Date: 20120904
  Receipt Date: 20130206
  Transmission Date: 20140127
  Serious: Yes (Other)
  Sender: FDA-Public Use
  Company Number: US-ELI_LILLY_AND_COMPANY-US201208009577

PATIENT
  Age: 64 Year
  Sex: Female

DRUGS (29)
  1. FORTEO [Suspect]
     Indication: OSTEOPOROSIS
     Dosage: 20 UG, QD
     Dates: start: 20120828
  2. FORTEO [Suspect]
     Dosage: 20 UG, QD
  3. AMBIEN [Concomitant]
     Dosage: UNK, PRN
  4. ASTEPRO [Concomitant]
     Dosage: UNK, EACH EVENING
     Route: 045
  5. BENICAR [Concomitant]
     Dosage: 20 MG, UNK
  6. CELEBREX [Concomitant]
     Dosage: 200 MG, UNK
  7. CITALOPRAM [Concomitant]
     Dosage: 20 MG, OTHER
  8. FLEXERIL [Concomitant]
     Dosage: 10 MG, EACH EVENING
  9. FLUTICASONE [Concomitant]
     Dosage: 50 UG, EACH MORNING
     Route: 045
  10. HYDROCHLOROTHIAZIDE [Concomitant]
     Dosage: 12.5 MG, UNK
  11. HYDROCODONE [Concomitant]
     Indication: PAIN
     Dosage: UNK, PRN
  12. XYZAL [Concomitant]
     Dosage: 5 MG, UNK
  13. NITRO                              /00003201/ [Concomitant]
     Dosage: UNK, QD
  14. OMEPRAZOLE [Concomitant]
     Dosage: 20 MG, QD
  15. OXYBUTYNIN [Concomitant]
     Dosage: 20 MG, UNK
  16. SIMVASTATIN [Concomitant]
     Dosage: 20 MG, UNK
  17. SINGULAIR [Concomitant]
     Dosage: 10 MG, EACH EVENING
  18. SOTALOL [Concomitant]
     Dosage: 80 MG, BID
  19. SYNTHROID [Concomitant]
     Dosage: 50 UG, QD
  20. VAGIFEM [Concomitant]
     Dosage: 10 UG, 2/W
  21. CALCIUM [Concomitant]
     Dosage: 1000 MG, UNK
  22. VITAMIN D [Concomitant]
     Dosage: 200 U, UNK
  23. ESTER C                            /00968001/ [Concomitant]
     Dosage: 1000 MG, BID
  24. MAGNESIUM OXIDE [Concomitant]
     Dosage: 400 MG, QD
  25. MULTIVITAMIN [Concomitant]
     Dosage: UNK
  26. OSTEO BI-FLEX [Concomitant]
     Dosage: UNK, BID
  27. GLUCOSAMINE SULFATE [Concomitant]
     Dosage: 2 DF, EACH EVENING
  28. TRAMADOL [Concomitant]
     Dosage: 50 MG, PRN
  29. TYLENOL                                 /SCH/ [Concomitant]
     Dosage: 500 MG, PRN

REACTIONS (7)
  - Precancerous skin lesion [Unknown]
  - Rosacea [Unknown]
  - Pruritus generalised [Recovering/Resolving]
  - Muscle spasms [Recovered/Resolved]
  - Arthralgia [Unknown]
  - Insomnia [Unknown]
  - Weight increased [Unknown]
